FAERS Safety Report 10227591 (Version 2)
Quarter: 2014Q2

REPORT INFORMATION
  Report Type: Spontaneous
  Country: FR (occurrence: FR)
  Receive Date: 20140610
  Receipt Date: 20140610
  Transmission Date: 20141212
  Serious: Yes (Hospitalization)
  Sender: FDA-Public Use
  Company Number: FR-ROCHE-1203312

PATIENT
  Age: 59 Year
  Sex: Female
  Weight: 70 kg

DRUGS (1)
  1. XELODA [Suspect]
     Indication: CERVIX CANCER METASTATIC
     Route: 048
     Dates: end: 201302

REACTIONS (3)
  - Dyspnoea [Unknown]
  - Palpitations [Unknown]
  - Supraventricular tachycardia [Unknown]
